FAERS Safety Report 5055300-1 (Version None)
Quarter: 2006Q3

REPORT INFORMATION
  Report Type: 
  Country: None (occurrence: None)
  Receive Date: 20060714
  Receipt Date: 20060629
  Transmission Date: 20061208
  Serious: Yes (Hospitalization, Other)
  Sender: FDA-Public Use
  Company Number: PHRM2006FR01984

PATIENT
  Age: 92 Year
  Sex: Female

DRUGS (4)
  1. VISUDYNE [Suspect]
  2. NUTRITIONAL SUPPLEMENTS [Concomitant]
  3. CRESTOR [Concomitant]
  4. LOXEN [Concomitant]

REACTIONS (1)
  - CHOLECYSTITIS [None]
